FAERS Safety Report 15626181 (Version 1)
Quarter: 2018Q4

REPORT INFORMATION
  Report Type: Spontaneous
  Country: MX (occurrence: MX)
  Receive Date: 20181116
  Receipt Date: 20181116
  Transmission Date: 20190205
  Serious: Yes (Other)
  Sender: FDA-Public Use
  Company Number: MX-GUERBET-MX-20180025

PATIENT
  Age: 23 Year
  Sex: Female
  Weight: 70 kg

DRUGS (1)
  1. OPTIRAY 320 [Suspect]
     Active Substance: IOVERSOL
     Indication: ANGIOGRAM
     Route: 042
     Dates: start: 20181025, end: 20181025

REACTIONS (7)
  - Unresponsive to stimuli [Recovered/Resolved]
  - Nausea [Recovered/Resolved]
  - Crying [Recovered/Resolved]
  - Vomiting [Recovered/Resolved]
  - Dyspnoea [Recovered/Resolved]
  - Disorientation [Recovered/Resolved]
  - Fatigue [Recovered/Resolved]

NARRATIVE: CASE EVENT DATE: 20181025
